FAERS Safety Report 8539443-3 (Version None)
Quarter: 2012Q3

REPORT INFORMATION
  Report Type: 
  Country: None (occurrence: None)
  Receive Date: 20120726
  Receipt Date: 20120719
  Transmission Date: 20120928
  Serious: Yes (Congenital Anomaly, Other)
  Sender: FDA-Public Use
  Company Number: US-JNJFOC-20120518256

PATIENT
  Sex: Male

DRUGS (10)
  1. UNKNOWN MEDICATION [Suspect]
     Indication: FOETAL EXPOSURE DURING PREGNANCY
     Route: 064
  2. CAFFEINE [Suspect]
     Indication: MIGRAINE
     Route: 064
  3. ZOLOFT [Suspect]
     Indication: FOETAL EXPOSURE DURING PREGNANCY
     Route: 064
  4. CEPHALEXIN [Suspect]
     Indication: FOETAL EXPOSURE DURING PREGNANCY
     Route: 064
  5. EPIDURAL ANESTHESIA [Suspect]
     Indication: ANAESTHESIA
     Route: 064
  6. AMOXICILLIN [Suspect]
     Indication: FOETAL EXPOSURE DURING PREGNANCY
     Route: 064
  7. ERRIN [Suspect]
     Indication: FOETAL EXPOSURE DURING PREGNANCY
     Route: 064
  8. IMITREX [Suspect]
     Indication: FOETAL EXPOSURE DURING PREGNANCY
     Route: 064
  9. TOPAMAX [Suspect]
     Indication: FOETAL EXPOSURE DURING PREGNANCY
     Route: 064
  10. MULTI-VITAMINS [Concomitant]
     Indication: FOETAL EXPOSURE DURING PREGNANCY
     Route: 064

REACTIONS (9)
  - BODY TEMPERATURE FLUCTUATION [None]
  - ARNOLD-CHIARI MALFORMATION [None]
  - NEUROGENIC BOWEL [None]
  - SPINA BIFIDA [None]
  - EPILEPSY [None]
  - HYDROCEPHALUS [None]
  - NEUROGENIC BLADDER [None]
  - EMOTIONAL DISORDER [None]
  - MENINGOMYELOCELE [None]
